FAERS Safety Report 8963693 (Version 2)
Quarter: 2012Q4

REPORT INFORMATION
  Report Type: 
  Country: CA (occurrence: CA)
  Receive Date: 20121214
  Receipt Date: 20121231
  Transmission Date: 20130627
  Serious: Yes (Hospitalization)
  Sender: FDA-Public Use
  Company Number: CA-AMGEN-CANSP2012077041

PATIENT
  Age: 48 Year
  Sex: Female
  Weight: 62 kg

DRUGS (4)
  1. NEULASTA [Suspect]
     Indication: PROPHYLAXIS
     Dosage: 6 mg, Once
     Route: 058
     Dates: start: 20121110, end: 20121110
  2. FLUOROURACIL [Suspect]
     Indication: BREAST CANCER
     Dosage: 500 mg/m2, q3wk
     Route: 042
     Dates: start: 20121109
  3. EPIRUBICIN [Suspect]
     Indication: BREAST CANCER
     Dosage: 100 mg/m2, q3wk
     Route: 042
     Dates: start: 20121109
  4. CYCLOPHOSPHAMIDE [Suspect]
     Indication: BREAST CANCER
     Dosage: 500 mg/m2, q3wk
     Route: 042
     Dates: start: 20121109

REACTIONS (2)
  - Febrile neutropenia [Recovered/Resolved]
  - Infection [Recovered/Resolved]
